FAERS Safety Report 16443698 (Version 8)
Quarter: 2020Q2

REPORT INFORMATION
  Report Type: Spontaneous
  Country: US (occurrence: US)
  Receive Date: 20190618
  Receipt Date: 20200625
  Transmission Date: 20200713
  Serious: Yes (Hospitalization, Other)
  Sender: FDA-Public Use
  Company Number: US-TAKEDA-2019TUS036416

PATIENT
  Age: 67 Year
  Sex: Male
  Weight: 113 kg

DRUGS (1)
  1. NINLARO [Suspect]
     Active Substance: IXAZOMIB CITRATE
     Indication: PLASMA CELL MYELOMA
     Dosage: 4 MILLIGRAM
     Route: 048
     Dates: start: 20190418

REACTIONS (8)
  - Laboratory test abnormal [Unknown]
  - Taste disorder [Unknown]
  - Blood potassium decreased [Unknown]
  - Blood iron decreased [Unknown]
  - Dyspnoea [Unknown]
  - Red blood cell count decreased [Unknown]
  - Diarrhoea [Recovering/Resolving]
  - Blood magnesium decreased [Unknown]

NARRATIVE: CASE EVENT DATE: 201902
